FAERS Safety Report 19830306 (Version 17)
Quarter: 2023Q1

REPORT INFORMATION
  Report Type: Report from Study
  Country: CN (occurrence: None)
  Receive Date: 20210915
  Receipt Date: 20230214
  Transmission Date: 20230417
  Serious: Yes (Hospitalization)
  Sender: FDA-Public Use
  Company Number: CN-ROCHE-2899101

PATIENT
  Age: 63 Year
  Sex: Female
  Weight: 58 kg

DRUGS (32)
  1. ATEZOLIZUMAB [Suspect]
     Active Substance: ATEZOLIZUMAB
     Indication: Lung adenocarcinoma
     Dosage: ON 18/AUG/2021, 6/DEC/2021 SHE RECEIVED MOST RECENT DOSE OF BLINDED ATEZOLIZUMAB WAS RECEIVED PRIOR
     Route: 042
     Dates: start: 20201125
  2. BEVACIZUMAB [Suspect]
     Active Substance: BEVACIZUMAB
     Indication: Lung adenocarcinoma
     Dosage: ON 28/JUL/2021,06/DEC/2021 SHE RECEIVED MOST RECENT DOSE OF BEVACIZUMAB (810 MG) PRIOR TO ONSET OF S
     Route: 042
     Dates: start: 20201125
  3. CARBOPLATIN [Suspect]
     Active Substance: CARBOPLATIN
     Indication: Lung adenocarcinoma
     Dosage: ON 29/JAN/2021, SHE RECEIVED MOST RECENT DOSE OF CARBOPLATIN (450 MG) PRIOR TO ONSET OF SERIOUS ADVE
     Route: 042
     Dates: start: 20201125
  4. PEMETREXED [Suspect]
     Active Substance: PEMETREXED
     Indication: Lung adenocarcinoma
     Dosage: ON 19/MAR/2021, SHE RECEIVED MOST RECENT DOSE OF PEMETREXED (760 MG) PRIOR TO ONSET OF SERIOUS ADVER
     Route: 042
     Dates: start: 20201125
  5. FOLIC ACID [Concomitant]
     Active Substance: FOLIC ACID
     Route: 048
     Dates: start: 20201116
  6. OXYCODONE AND ACETAMINOPHEN [Concomitant]
     Active Substance: ACETAMINOPHEN\OXYCODONE HYDROCHLORIDE
     Indication: Pain
     Route: 048
     Dates: start: 20200914
  7. MORPHINE SULFATE [Concomitant]
     Active Substance: MORPHINE SULFATE
     Indication: Pain
     Route: 048
     Dates: start: 20200914
  8. GLYCERINE ENEMA [Concomitant]
     Dates: start: 202009
  9. MOXIFLOXACIN HYDROCHLORIDE [Concomitant]
     Active Substance: MOXIFLOXACIN HYDROCHLORIDE
     Indication: Urinary tract infection
     Dates: start: 20210105
  10. FUFANG BANLANGENG CHONGJI [Concomitant]
     Route: 048
     Dates: start: 20210531
  11. IBANDRONATE SODIUM [Concomitant]
     Active Substance: IBANDRONATE SODIUM
     Indication: Metastases to bone
     Dates: start: 20210728, end: 20210728
  12. IBANDRONATE SODIUM [Concomitant]
     Active Substance: IBANDRONATE SODIUM
     Indication: Metastases to bone
     Dates: start: 20210818, end: 20210818
  13. IBANDRONATE SODIUM [Concomitant]
     Active Substance: IBANDRONATE SODIUM
     Dates: start: 20220127, end: 20220127
  14. IBANDRONATE SODIUM [Concomitant]
     Active Substance: IBANDRONATE SODIUM
     Dates: start: 20211206, end: 20211206
  15. IBANDRONATE SODIUM [Concomitant]
     Active Substance: IBANDRONATE SODIUM
     Dates: start: 20220811, end: 20220811
  16. IBANDRONATE SODIUM [Concomitant]
     Active Substance: IBANDRONATE SODIUM
     Dates: start: 20220901, end: 20220901
  17. IBANDRONATE SODIUM [Concomitant]
     Active Substance: IBANDRONATE SODIUM
     Dates: start: 20220923, end: 20220923
  18. IBANDRONATE SODIUM [Concomitant]
     Active Substance: IBANDRONATE SODIUM
     Dates: start: 20221013, end: 20221013
  19. IBANDRONATE SODIUM [Concomitant]
     Active Substance: IBANDRONATE SODIUM
     Dates: start: 20221104, end: 20221104
  20. IBANDRONATE SODIUM [Concomitant]
     Active Substance: IBANDRONATE SODIUM
     Dates: start: 20221128, end: 20221128
  21. NIFEDIPINE [Concomitant]
     Active Substance: NIFEDIPINE
     Indication: Hypertension
     Route: 048
     Dates: start: 20220204, end: 20220207
  22. ATORVASTATIN CALCIUM [Concomitant]
     Active Substance: ATORVASTATIN CALCIUM
     Indication: Hypertension
     Route: 048
     Dates: start: 20220208, end: 20220308
  23. VALSARTAN [Concomitant]
     Active Substance: VALSARTAN
     Indication: Hypertension
     Route: 048
     Dates: start: 20220208, end: 20220705
  24. JIN YIN HUA [Concomitant]
     Route: 048
     Dates: start: 20221225, end: 20221226
  25. ESTAZOLAM [Concomitant]
     Active Substance: ESTAZOLAM
     Indication: Insomnia
     Route: 048
     Dates: start: 20220216
  26. SACUBITRIL\VALSARTAN [Concomitant]
     Active Substance: SACUBITRIL\VALSARTAN
     Indication: Hypertension
     Route: 048
     Dates: start: 20220706, end: 20221221
  27. BERAPROST SODIUM [Concomitant]
     Active Substance: BERAPROST SODIUM
     Dates: start: 20220706, end: 20221221
  28. IBUPROFEN [Concomitant]
     Active Substance: IBUPROFEN
     Indication: COVID-19
     Route: 048
     Dates: start: 20221222, end: 20221222
  29. ACETYLCYSTEINE [Concomitant]
     Active Substance: ACETYLCYSTEINE
     Indication: Productive cough
     Route: 048
     Dates: start: 20221231, end: 20230103
  30. UBIDECARENONE [Concomitant]
     Active Substance: UBIDECARENONE
     Route: 048
     Dates: start: 20221227, end: 20230103
  31. NICOTINAMIDE [Concomitant]
     Active Substance: NIACINAMIDE
     Dates: start: 20221227, end: 20230103
  32. HERBALS [Concomitant]
     Active Substance: HERBALS
     Dates: start: 20221227, end: 20221229

REACTIONS (1)
  - Nephritis [Recovering/Resolving]

NARRATIVE: CASE EVENT DATE: 20210825
